FAERS Safety Report 7365796-8 (Version None)
Quarter: 2011Q1

REPORT INFORMATION
  Report Type: 
  Country: None (occurrence: None)
  Receive Date: 20110322
  Receipt Date: 20110308
  Transmission Date: 20110831
  Serious: Yes (Other)
  Sender: FDA-Public Use
  Company Number: CA-JNJFOC-20110304935

PATIENT
  Sex: Male
  Weight: 63 kg

DRUGS (3)
  1. LYRICA [Concomitant]
     Route: 065
  2. REMICADE [Suspect]
     Indication: PRODUCT USED FOR UNKNOWN INDICATION
     Route: 042
  3. METHOTREXATE [Concomitant]
     Route: 048

REACTIONS (2)
  - THROAT CANCER [None]
  - BARRETT'S OESOPHAGUS [None]
